FAERS Safety Report 20853173 (Version 2)
Quarter: 2022Q3

REPORT INFORMATION
  Report Type: Spontaneous
  Country: CA (occurrence: CA)
  Receive Date: 20220520
  Receipt Date: 20220708
  Transmission Date: 20221026
  Serious: Yes (Hospitalization, Other)
  Sender: FDA-Public Use
  Company Number: CA-BAYER-2022A067164

PATIENT
  Age: 56 Year
  Sex: Female

DRUGS (27)
  1. NAPROXEN SODIUM [Suspect]
     Active Substance: NAPROXEN SODIUM
  2. ENBREL [Suspect]
     Active Substance: ETANERCEPT
     Indication: Product use in unapproved indication
     Dosage: 250 MG
  3. ADALIMUMAB [Suspect]
     Active Substance: ADALIMUMAB
     Indication: Product use in unapproved indication
  4. INFLIXIMAB [Suspect]
     Active Substance: INFLIXIMAB
     Indication: Product use in unapproved indication
     Dosage: 5 MG
  5. ACTEMRA [Suspect]
     Active Substance: TOCILIZUMAB
     Indication: Product use in unapproved indication
  6. PREDNISONE [Suspect]
     Active Substance: PREDNISONE
     Indication: Product use in unapproved indication
     Dosage: 3 MG
  7. GOLD [Suspect]
     Active Substance: GOLD
     Indication: Product use in unapproved indication
  8. METHOTREXATE [Suspect]
     Active Substance: METHOTREXATE
     Indication: Product use in unapproved indication
  9. METHOTREXATE [Suspect]
     Active Substance: METHOTREXATE
     Indication: Product use in unapproved indication
  10. PREDNISONE [Suspect]
     Active Substance: PREDNISONE
     Indication: Product use in unapproved indication
     Dosage: 2 MG
  11. RISEDRONATE SODIUM [Suspect]
     Active Substance: RISEDRONATE SODIUM
     Indication: Product use in unapproved indication
  12. TRIAMCINOLONE [Suspect]
     Active Substance: TRIAMCINOLONE
     Indication: Product use in unapproved indication
  13. HYDROXYCHLOROQUINE [Suspect]
     Active Substance: HYDROXYCHLOROQUINE
     Indication: Product use in unapproved indication
  14. LEFLUNOMIDE [Suspect]
     Active Substance: LEFLUNOMIDE
     Indication: Product use in unapproved indication
     Dosage: 20 MG
  15. FOLIC ACID [Suspect]
     Active Substance: FOLIC ACID
  16. ANAKINRA [Suspect]
     Active Substance: ANAKINRA
     Indication: Product use in unapproved indication
     Dosage: 100 MG
  17. TRIAMCINOLONE ACETONIDE [Suspect]
     Active Substance: TRIAMCINOLONE ACETONIDE
     Indication: Product use in unapproved indication
  18. RITUXIMAB [Suspect]
     Active Substance: RITUXIMAB
     Indication: Product use in unapproved indication
  19. HUMIRA [Suspect]
     Active Substance: ADALIMUMAB
     Indication: Product use in unapproved indication
  20. XELJANZ [Suspect]
     Active Substance: TOFACITINIB CITRATE
     Indication: Product use in unapproved indication
  21. SIMPONI [Suspect]
     Active Substance: GOLIMUMAB
  22. LEFLUNOMIDE [Suspect]
     Active Substance: LEFLUNOMIDE
     Indication: Product use in unapproved indication
  23. SULFASALAZINE [Suspect]
     Active Substance: SULFASALAZINE
     Indication: Product use in unapproved indication
  24. ARAVA [Suspect]
     Active Substance: LEFLUNOMIDE
     Indication: Product use in unapproved indication
  25. ORENCIA [Suspect]
     Active Substance: ABATACEPT
     Indication: Product use in unapproved indication
  26. REMICADE [Suspect]
     Active Substance: INFLIXIMAB
     Indication: Product use in unapproved indication
  27. NAPROXEN [Suspect]
     Active Substance: NAPROXEN
     Indication: Product used for unknown indication
     Dosage: UNK
     Route: 065

REACTIONS (44)
  - Arthropathy [Not Recovered/Not Resolved]
  - Adrenal insufficiency [Not Recovered/Not Resolved]
  - Anti-cyclic citrullinated peptide antibody positive [Not Recovered/Not Resolved]
  - Arthritis [Not Recovered/Not Resolved]
  - Condition aggravated [Not Recovered/Not Resolved]
  - Contraindicated product administered [Not Recovered/Not Resolved]
  - Diarrhoea [Not Recovered/Not Resolved]
  - Dizziness [Not Recovered/Not Resolved]
  - Drug hypersensitivity [Not Recovered/Not Resolved]
  - Drug ineffective [Not Recovered/Not Resolved]
  - Drug intolerance [Not Recovered/Not Resolved]
  - Foot deformity [Not Recovered/Not Resolved]
  - Gastroenteritis viral [Not Recovered/Not Resolved]
  - Hand deformity [Not Recovered/Not Resolved]
  - Hypertension [Not Recovered/Not Resolved]
  - Hypokalaemia [Not Recovered/Not Resolved]
  - Hypotension [Not Recovered/Not Resolved]
  - Immunodeficiency [Not Recovered/Not Resolved]
  - Infection [Not Recovered/Not Resolved]
  - Intentional product use issue [Not Recovered/Not Resolved]
  - Joint destruction [Not Recovered/Not Resolved]
  - Limb discomfort [Not Recovered/Not Resolved]
  - Loss of consciousness [Not Recovered/Not Resolved]
  - Loss of personal independence in daily activities [Not Recovered/Not Resolved]
  - Malaise [Not Recovered/Not Resolved]
  - Mobility decreased [Not Recovered/Not Resolved]
  - Nausea [Not Recovered/Not Resolved]
  - Nodule [Not Recovered/Not Resolved]
  - Off label use [Not Recovered/Not Resolved]
  - Pleural effusion [Not Recovered/Not Resolved]
  - Polyarthritis [Not Recovered/Not Resolved]
  - Psoriasis [Not Recovered/Not Resolved]
  - Pulmonary fibrosis [Not Recovered/Not Resolved]
  - Pyrexia [Not Recovered/Not Resolved]
  - Red blood cell sedimentation rate abnormal [Not Recovered/Not Resolved]
  - Rheumatoid arthritis [Not Recovered/Not Resolved]
  - Rheumatoid factor positive [Not Recovered/Not Resolved]
  - Septic shock [Not Recovered/Not Resolved]
  - Synovitis [Not Recovered/Not Resolved]
  - Therapeutic product effect decreased [Not Recovered/Not Resolved]
  - Therapy non-responder [Not Recovered/Not Resolved]
  - Vomiting [Not Recovered/Not Resolved]
  - Hypocalcaemia [Not Recovered/Not Resolved]
  - Obesity [Not Recovered/Not Resolved]
